FAERS Safety Report 21619142 (Version 1)
Quarter: 2022Q4

REPORT INFORMATION
  Report Type: Report from Study
  Country: US (occurrence: US)
  Receive Date: 20221120
  Receipt Date: 20221120
  Transmission Date: 20230112
  Serious: No
  Sender: FDA-Public Use
  Company Number: US-ABBVIE-4171652

PATIENT
  Sex: Female

DRUGS (1)
  1. SYNTHROID [Suspect]
     Active Substance: LEVOTHYROXINE SODIUM
     Indication: Hypothyroidism
     Dosage: 1 TABLET WITH MEALS MONDAY TO FRIDAY AND HALF TABLET ON SATURDAY AND SUNDAY?FORM STRENGTH: 125 MI...
     Route: 048

REACTIONS (7)
  - Weight increased [Unknown]
  - Feeling abnormal [Unknown]
  - Dyspnoea [Unknown]
  - Hypersomnia [Unknown]
  - Fatigue [Unknown]
  - Dry skin [Unknown]
  - Pruritus [Unknown]

NARRATIVE: CASE EVENT DATE: 20220101
